FAERS Safety Report 7810916-1 (Version None)
Quarter: 2011Q4

REPORT INFORMATION
  Report Type: 
  Country: None (occurrence: None)
  Receive Date: 20111013
  Receipt Date: 20111007
  Transmission Date: 20120403
  Serious: No
  Sender: FDA-Public Use
  Company Number: US-PFIZER INC-2011212068

PATIENT
  Sex: Female
  Weight: 63.5 kg

DRUGS (4)
  1. EFFEXOR [Suspect]
     Indication: HOT FLUSH
     Dosage: UNK
     Route: 048
     Dates: start: 20101201, end: 20110101
  2. TAMOXIFEN [Concomitant]
     Indication: BREAST CANCER
     Dosage: 20 MG, 1X/DAY
     Route: 048
  3. LYRICA [Concomitant]
     Indication: PROCEDURAL PAIN
     Dosage: 75 MG, 2X/DAY PLUS 50 MG NOON
     Route: 048
  4. VITAMIN D [Concomitant]
     Dosage: 2000 IU, 1X/DAY

REACTIONS (1)
  - DRUG INEFFECTIVE [None]
